FAERS Safety Report 5336441-8 (Version None)
Quarter: 2007Q2

REPORT INFORMATION
  Report Type: 
  Country: None (occurrence: None)
  Receive Date: 20070523
  Receipt Date: 20070508
  Transmission Date: 20071010
  Serious: Yes (Death)
  Sender: FDA-Public Use
  Company Number: 2007JP002049

PATIENT
  Age: 19 Year
  Sex: Male

DRUGS (5)
  1. FUNGUARD(MICAFUNGIN) INJECTION [Suspect]
     Indication: FUNGAL INFECTION
     Dosage: 150 MG, UID/QD, IV DRIP
     Route: 041
     Dates: start: 20070430, end: 20070502
  2. PIRARUBICIN (PIRARUBICIN) [Concomitant]
  3. VINORELBINE TARTRATE [Concomitant]
  4. PREDNISOLONE [Concomitant]
  5. ETOPOSIDE [Concomitant]

REACTIONS (3)
  - ASTHMA [None]
  - BLOOD GLUCOSE INCREASED [None]
  - WHITE BLOOD CELL COUNT DECREASED [None]
